FAERS Safety Report 22537683 (Version 1)
Quarter: 2023Q2

REPORT INFORMATION
  Report Type: Spontaneous
  Country: US (occurrence: None)
  Receive Date: 20230607
  Receipt Date: 20230607
  Transmission Date: 20230722
  Serious: No
  Sender: FDA-Public Use
  Company Number: None

PATIENT
  Age: 69 Year
  Sex: Female
  Weight: 118.84 kg

DRUGS (19)
  1. KISQALI [Suspect]
     Active Substance: RIBOCICLIB
     Indication: Breast cancer female
     Dosage: FREQUENCY : DAILY;?
     Route: 048
     Dates: start: 202210
  2. ANASTROZOLE [Concomitant]
     Active Substance: ANASTROZOLE
  3. ATORVASTATIN [Concomitant]
  4. BENZONATATE [Concomitant]
     Active Substance: BENZONATATE
  5. BIOTIN [Concomitant]
  6. CALCIUM [Concomitant]
     Active Substance: CALCIUM
  7. CHANTIX [Concomitant]
  8. CLINDAMYCIN [Concomitant]
     Active Substance: CLINDAMYCIN
  9. DOXYCYCLINE [Concomitant]
     Active Substance: DOXYCYCLINE
  10. FLONASE [Concomitant]
     Active Substance: FLUTICASONE PROPIONATE
  11. IBRANCE [Concomitant]
     Active Substance: PALBOCICLIB
  12. LETROZOLE [Concomitant]
     Active Substance: LETROZOLE
  13. MULTIVITAMIN [Concomitant]
  14. MYRBETRIQ [Concomitant]
     Active Substance: MIRABEGRON
  15. OMEPRAZOLE [Concomitant]
  16. SERTRALINE [Concomitant]
     Active Substance: SERTRALINE HYDROCHLORIDE
  17. VITAMIN B12 [Concomitant]
     Active Substance: CYANOCOBALAMIN
  18. VITAMIN C [Concomitant]
     Active Substance: ASCORBIC ACID
  19. VITAMIN D3 [Concomitant]
     Active Substance: CHOLECALCIFEROL

REACTIONS (1)
  - Bronchitis [None]
